FAERS Safety Report 9551411 (Version 1)
Quarter: 2013Q3

REPORT INFORMATION
  Report Type: Spontaneous
  Country: US (occurrence: None)
  Receive Date: 20130721
  Receipt Date: 20130721
  Transmission Date: 20140515
  Serious: Yes (Other)
  Sender: FDA-Public Use
  Company Number: PHEH2012US011200

PATIENT
  Age: 72 Year
  Sex: Female

DRUGS (2)
  1. GLEEVEC (IMATINIB) UNKNOWN [Suspect]
     Indication: CHRONIC MYELOID LEUKAEMIA
     Dosage: , ORAL
  2. ZOLOFT  (SERTRALINE HYDROCHLORIDE) [Concomitant]

REACTIONS (3)
  - Chronic myeloid leukaemia [None]
  - Drug ineffective [None]
  - Malignant neoplasm progression [None]
